FAERS Safety Report 6544856-5 (Version None)
Quarter: 2010Q1

REPORT INFORMATION
  Report Type: 
  Country: None (occurrence: None)
  Receive Date: 20100121
  Receipt Date: 20100111
  Transmission Date: 20100710
  Serious: Yes (Other)
  Sender: FDA-Public Use
  Company Number: FR-PFIZER INC-2010003672

PATIENT
  Age: 48 Year
  Sex: Female

DRUGS (3)
  1. DALACINE [Suspect]
     Dosage: 1 DF, 1X/DAY
     Route: 048
     Dates: start: 20090901
  2. AMOXICILLIN [Concomitant]
     Indication: TOOTH INFECTION
  3. FLAGYL [Concomitant]
     Indication: TOOTH INFECTION

REACTIONS (2)
  - ANGIOEDEMA [None]
  - PARAESTHESIA [None]
